FAERS Safety Report 13910647 (Version 1)
Quarter: 2017Q3

REPORT INFORMATION
  Report Type: Spontaneous
  Country: CH (occurrence: CH)
  Receive Date: 20170828
  Receipt Date: 20170828
  Transmission Date: 20171127
  Serious: Yes (Hospitalization)
  Sender: FDA-Public Use
  Company Number: CH-PFIZER INC-2017364118

PATIENT
  Age: 81 Year
  Sex: Male

DRUGS (13)
  1. SPIRIVA [Concomitant]
     Active Substance: TIOTROPIUM BROMIDE MONOHYDRATE
     Dosage: UNK
  2. BELOC ZOK [Suspect]
     Active Substance: METOPROLOL SUCCINATE
     Dosage: 100 MG, 1X/DAY
     Route: 048
     Dates: start: 201705, end: 20170602
  3. DISTRANEURINE /00027501/ [Concomitant]
     Active Substance: CLOMETHIAZOLE
     Dosage: UNK
  4. CALCIMAGON D3 [Concomitant]
     Active Substance: CALCIUM\CHOLECALCIFEROL
     Dosage: UNK
  5. FOLIC ACID. [Concomitant]
     Active Substance: FOLIC ACID
     Dosage: UNK
  6. BELOC ZOK [Suspect]
     Active Substance: METOPROLOL SUCCINATE
     Dosage: UNK
     Route: 048
     Dates: start: 201605, end: 201705
  7. SORTIS [Concomitant]
     Active Substance: ATORVASTATIN
     Dosage: UNK
  8. BELOC ZOK [Suspect]
     Active Substance: METOPROLOL SUCCINATE
     Dosage: UNK
     Route: 048
     Dates: start: 20170607
  9. TEGRETOL [Suspect]
     Active Substance: CARBAMAZEPINE
     Dosage: 200 MG, 3X/DAY
     Route: 048
     Dates: start: 1998
  10. EXELON [Suspect]
     Active Substance: RIVASTIGMINE TARTRATE
     Dosage: 3 MG, 3X/DAY
     Route: 048
     Dates: start: 2015
  11. ELIQUIS [Concomitant]
     Active Substance: APIXABAN
     Dosage: UNK
  12. SEREVENT DISKUS [Concomitant]
     Active Substance: SALMETEROL XINAFOATE
     Dosage: UNK
  13. LYRICA [Suspect]
     Active Substance: PREGABALIN
     Dosage: 75 MG, 2X/DAY
     Route: 048
     Dates: start: 2015

REACTIONS (1)
  - Bradycardia [Recovered/Resolved]

NARRATIVE: CASE EVENT DATE: 20170602
